FAERS Safety Report 11046903 (Version 1)
Quarter: 2015Q2

REPORT INFORMATION
  Report Type: Spontaneous
  Country: GB (occurrence: GB)
  Receive Date: 20150420
  Receipt Date: 20150420
  Transmission Date: 20150821
  Serious: Yes (Other)
  Sender: FDA-Public Use
  Company Number: GB-TEVA-555026ACC

PATIENT
  Age: 70 Year
  Sex: Female
  Weight: 60 kg

DRUGS (9)
  1. ASPIRIN. [Concomitant]
     Active Substance: ASPIRIN
     Dosage: 1 DOSAGE FORMS DAILY;
     Dates: start: 20140515
  2. ZEROBASE [Concomitant]
     Dosage: USE AS DIRECTED
     Dates: start: 20150309
  3. LEVOTHYROXINE [Concomitant]
     Active Substance: LEVOTHYROXINE
     Dosage: 1 DOSAGE FORMS DAILY; EACH MORNING
     Dates: start: 20140515
  4. PARACETAMOL [Concomitant]
     Active Substance: ACETAMINOPHEN
     Dosage: 8 DOSAGE FORMS DAILY;
     Dates: start: 20140515
  5. SIMVASTATIN. [Concomitant]
     Active Substance: SIMVASTATIN
     Dosage: 1 DOSAGE FORMS DAILY; AT NIGHT
     Dates: start: 20140515
  6. AMOROLFINE [Concomitant]
     Active Substance: AMOROLFINE
     Dosage: APPLY AS DIRECTED
     Dates: start: 20140515
  7. RAMIPRIL. [Suspect]
     Active Substance: RAMIPRIL
     Dates: start: 20141029
  8. CODEINE PHOSPHATE [Concomitant]
     Active Substance: CODEINE PHOSPHATE
     Dosage: 15 ML DAILY;
     Dates: start: 20150112, end: 20150122
  9. LOSARTAN [Concomitant]
     Active Substance: LOSARTAN
     Dosage: 1 DOSAGE FORMS DAILY;
     Dates: start: 20150331

REACTIONS (1)
  - Cough [Unknown]

NARRATIVE: CASE EVENT DATE: 20150402
